FAERS Safety Report 10060027 (Version 1)
Quarter: 2014Q2

REPORT INFORMATION
  Report Type: Spontaneous
  Country: US (occurrence: US)
  Receive Date: 20140404
  Receipt Date: 20140404
  Transmission Date: 20141212
  Serious: Yes (Hospitalization)
  Sender: FDA-Public Use
  Company Number: US-BAYER-2014-049471

PATIENT
  Age: 47 Year
  Sex: Female
  Weight: 98.41 kg

DRUGS (8)
  1. YASMIN [Suspect]
     Indication: PREMENSTRUAL SYNDROME
  2. YAZ [Suspect]
     Indication: PREMENSTRUAL SYNDROME
  3. AZITHROMYCIN [Concomitant]
     Dosage: 250 MG, UNK
     Route: 048
     Dates: start: 20061006
  4. SYNTHROID [Concomitant]
     Dosage: 100 MG, UNK
     Route: 048
  5. SYNTHROID [Concomitant]
  6. NITROFURANTOIN [Concomitant]
     Dosage: 100 MG, UNK
     Route: 048
     Dates: start: 20070118
  7. MACROBID [Concomitant]
  8. NITROGLYCERIN [Concomitant]

REACTIONS (1)
  - Pulmonary embolism [Recovering/Resolving]
